FAERS Safety Report 7226693-1 (Version None)
Quarter: 2011Q1

REPORT INFORMATION
  Report Type: 
  Country: None (occurrence: None)
  Receive Date: 20110114
  Receipt Date: 20110110
  Transmission Date: 20110831
  Serious: Yes (Hospitalization, Other)
  Sender: FDA-Public Use
  Company Number: FR-BRISTOL-MYERS SQUIBB COMPANY-15481716

PATIENT
  Age: 77 Year
  Sex: Female

DRUGS (9)
  1. EUPANTOL [Concomitant]
     Dosage: 1 IN THE EVENING,
  2. COUMADIN [Suspect]
     Dates: start: 20050101, end: 20101119
  3. LASIX [Concomitant]
     Dosage: DOSE 0.5 (UNIT NOT GIVEN)IN THE MORNING.
  4. LEVOTHYROX [Concomitant]
     Dosage: 1 IN THE MORNING (NORMAL RATE OF TSH),
  5. SPECIAFOLDINE [Concomitant]
     Dosage: IN THE MORNING,
  6. PREDNISONE [Concomitant]
     Dosage: 1 IN THE MORNING
  7. ALDACTONE [Concomitant]
     Dosage: 0.5 IN THE MORNING
  8. ARAVA [Suspect]
     Dosage: 1 IN THE MORNING
  9. DOLIPRANE [Concomitant]
     Indication: PAIN

REACTIONS (4)
  - NORMOCHROMIC NORMOCYTIC ANAEMIA [None]
  - LIPASE INCREASED [None]
  - GENERAL PHYSICAL HEALTH DETERIORATION [None]
  - CARDIAC FAILURE [None]
